FAERS Safety Report 18202680 (Version 1)
Quarter: 2020Q3

REPORT INFORMATION
  Report Type: Report from Study
  Country: None (occurrence: US)
  Receive Date: 20200827
  Receipt Date: 20200827
  Transmission Date: 20201103
  Serious: Yes (Other)
  Sender: FDA-Public Use
  Company Number: US-ABBVIE-20K-163-3495221-00

PATIENT
  Sex: Female

DRUGS (2)
  1. HUMIRA [Suspect]
     Active Substance: ADALIMUMAB
     Indication: PSORIASIS
  2. HUMIRA [Suspect]
     Active Substance: ADALIMUMAB
     Indication: PSORIATIC ARTHROPATHY
     Route: 058
     Dates: start: 202005

REACTIONS (13)
  - Wrong technique in product usage process [Unknown]
  - Emotional distress [Not Recovered/Not Resolved]
  - Influenza like illness [Recovering/Resolving]
  - Pain [Recovering/Resolving]
  - Systemic lupus erythematosus [Unknown]
  - Visual impairment [Recovering/Resolving]
  - Tooth infection [Recovering/Resolving]
  - Arthralgia [Unknown]
  - Tendonitis [Not Recovered/Not Resolved]
  - Insomnia [Unknown]
  - Mobility decreased [Not Recovered/Not Resolved]
  - Trigger finger [Not Recovered/Not Resolved]
  - Psoriasis [Not Recovered/Not Resolved]

NARRATIVE: CASE EVENT DATE: 2020
